FAERS Safety Report 4338588-1 (Version None)
Quarter: 2004Q2

REPORT INFORMATION
  Report Type: 
  Country: None (occurrence: None)
  Receive Date: 20040407
  Receipt Date: 20040326
  Transmission Date: 20050107
  Serious: Yes (Other)
  Sender: FDA-Public Use
  Company Number: 2004-DE-01534GD

PATIENT
  Age: 14 Year
  Sex: Male
  Weight: 59 kg

DRUGS (7)
  1. METHOTREXATE [Suspect]
     Indication: BONE SARCOMA
     Dosage: 6 CYCLES OF HIGH DOSE MTX
  2. IFOSFAMIDE [Concomitant]
  3. ETOPOSIDE [Concomitant]
  4. METOCLOPRAMIDE [Concomitant]
  5. TOPISETRON [Concomitant]
  6. ACETAMINOPHEN [Concomitant]
  7. NALBUPHINE HCL [Concomitant]

REACTIONS (13)
  - BLOOD HOMOCYSTEINE INCREASED [None]
  - BONE MARROW DEPRESSION [None]
  - BONE SARCOMA [None]
  - CROSS SENSITIVITY REACTION [None]
  - CYTOLYTIC HEPATITIS [None]
  - DRUG LEVEL INCREASED [None]
  - DRUG TOXICITY [None]
  - HEPATITIS [None]
  - JAUNDICE [None]
  - MUCOSAL INFLAMMATION [None]
  - PAIN [None]
  - RENAL FAILURE ACUTE [None]
  - VOMITING [None]
